FAERS Safety Report 4301793-4 (Version None)
Quarter: 2004Q1

REPORT INFORMATION
  Report Type: 
  Country: None (occurrence: None)
  Receive Date: 20040126
  Receipt Date: 20031006
  Transmission Date: 20041129
  Serious: No
  Sender: FDA-Public Use
  Company Number: USA031049160

PATIENT
  Age: 14 Year
  Sex: Female
  Weight: 55 kg

DRUGS (2)
  1. PROZAC WEEKLY [Suspect]
     Dosage: 90 MG/WEEK
     Dates: end: 20020101
  2. STRATTERA [Suspect]
     Indication: ATTENTION DEFICIT/HYPERACTIVITY DISORDER
     Dosage: 80 MG/DAY
     Dates: start: 20030701

REACTIONS (5)
  - IRRITABILITY [None]
  - MOOD ALTERED [None]
  - MOOD SWINGS [None]
  - PRESCRIBED OVERDOSE [None]
  - PSYCHOMOTOR HYPERACTIVITY [None]
